FAERS Safety Report 10074929 (Version 2)
Quarter: 2014Q2

REPORT INFORMATION
  Report Type: Report from Study
  Country: CA (occurrence: CA)
  Receive Date: 20140414
  Receipt Date: 20140414
  Transmission Date: 20141212
  Serious: Yes (Other)
  Sender: FDA-Public Use
  Company Number: CA-ROCHE-1369706

PATIENT
  Age: 45 Year
  Sex: Male

DRUGS (6)
  1. RITUXAN [Suspect]
     Indication: GRANULOMATOSIS WITH POLYANGIITIS
     Route: 042
     Dates: start: 20140319
  2. PREDNISONE [Concomitant]
     Route: 065
  3. PRAVASTATIN [Concomitant]
     Route: 065
  4. COVERSYL [Concomitant]
     Route: 065
  5. ALENDRONATE [Concomitant]
     Route: 065
  6. AZATHIOPRINE [Concomitant]
     Route: 065

REACTIONS (6)
  - Infusion related reaction [Recovering/Resolving]
  - Aggression [Recovered/Resolved]
  - Tremor [Not Recovered/Not Resolved]
  - Back pain [Not Recovered/Not Resolved]
  - Acne [Not Recovered/Not Resolved]
  - Arthralgia [Not Recovered/Not Resolved]
